FAERS Safety Report 17539853 (Version 7)
Quarter: 2022Q3

REPORT INFORMATION
  Report Type: Spontaneous
  Country: US (occurrence: None)
  Receive Date: 20200313
  Receipt Date: 20220814
  Transmission Date: 20221027
  Serious: Yes (Other)
  Sender: FDA-Public Use
  Company Number: 2020SE34943

PATIENT
  Age: 11648 Day
  Sex: Female
  Weight: 133.8 kg

DRUGS (105)
  1. NEXIUM [Suspect]
     Active Substance: ESOMEPRAZOLE MAGNESIUM
     Indication: Gastrooesophageal reflux disease
     Route: 048
     Dates: start: 2006, end: 2017
  2. NEXIUM [Suspect]
     Active Substance: ESOMEPRAZOLE MAGNESIUM
     Indication: Gastrooesophageal reflux disease
     Route: 048
     Dates: start: 201008, end: 201010
  3. NEXIUM [Suspect]
     Active Substance: ESOMEPRAZOLE MAGNESIUM
     Indication: Gastrooesophageal reflux disease
     Route: 048
     Dates: start: 20101015
  4. OMEPRAZOLE [Suspect]
     Active Substance: OMEPRAZOLE
     Indication: Gastrooesophageal reflux disease
     Dosage: GENERIC
     Route: 065
     Dates: start: 201604, end: 201809
  5. OMEPRAZOLE [Suspect]
     Active Substance: OMEPRAZOLE
     Indication: Gastrooesophageal reflux disease
     Dosage: GENERC
     Route: 065
     Dates: start: 20160921
  6. OMEPRAZOLE [Suspect]
     Active Substance: OMEPRAZOLE
     Indication: Gastrooesophageal reflux disease
     Dosage: GENERIC
     Route: 065
     Dates: start: 20170509, end: 20200604
  7. PREVACID [Suspect]
     Active Substance: LANSOPRAZOLE
     Indication: Gastrooesophageal reflux disease
     Route: 065
     Dates: start: 2006, end: 2017
  8. PREVACID [Suspect]
     Active Substance: LANSOPRAZOLE
     Indication: Gastrooesophageal reflux disease
     Route: 065
     Dates: start: 20080425
  9. PREVACID [Suspect]
     Active Substance: LANSOPRAZOLE
     Indication: Gastrooesophageal reflux disease
     Dosage: GENERIC
     Route: 065
     Dates: start: 2018
  10. PREVACID [Suspect]
     Active Substance: LANSOPRAZOLE
     Indication: Gastrooesophageal reflux disease
     Route: 065
     Dates: start: 20080125
  11. PREVACID [Suspect]
     Active Substance: LANSOPRAZOLE
     Indication: Gastrooesophageal reflux disease
     Dosage: GENERIC
     Route: 065
     Dates: start: 20200617
  12. ALPRAZOLAM [Concomitant]
     Active Substance: ALPRAZOLAM
     Dates: start: 20160202
  13. OXYBUTYNIN [Concomitant]
     Active Substance: OXYBUTYNIN
     Dates: start: 20160202
  14. OXYCODONE [Concomitant]
     Active Substance: OXYCODONE
     Dates: start: 20160202
  15. CLONAZEPAM [Concomitant]
     Active Substance: CLONAZEPAM
     Dates: start: 20101202
  16. APIDRA SOLOSTAR [Concomitant]
     Active Substance: INSULIN GLULISINE
     Dates: start: 20120217
  17. TRAMADOL [Concomitant]
     Active Substance: TRAMADOL
     Dates: start: 20101127
  18. FLUCONAZOLE [Concomitant]
     Active Substance: FLUCONAZOLE
     Dates: start: 20101202
  19. HYDROCODONE [Concomitant]
     Active Substance: HYDROCODONE
     Dates: start: 20101202
  20. METFORMIN [Concomitant]
     Active Substance: METFORMIN HYDROCHLORIDE
     Dates: start: 20101015
  21. GABAPENTIN [Concomitant]
     Active Substance: GABAPENTIN
     Dates: start: 20100902
  22. METOCLOPRAMIDE [Concomitant]
     Active Substance: METOCLOPRAMIDE
     Dates: start: 20100907
  23. BACLOFEN [Concomitant]
     Active Substance: BACLOFEN
     Dates: start: 20080430
  24. LORAZEPAM [Concomitant]
     Active Substance: LORAZEPAM
     Dates: start: 20080430
  25. SULINDAC [Concomitant]
     Active Substance: SULINDAC
     Dates: start: 20080124
  26. LEVAQUIN [Concomitant]
     Active Substance: LEVOFLOXACIN
     Dates: start: 20080327
  27. HUMALOG [Concomitant]
     Active Substance: INSULIN LISPRO
     Dates: start: 20060710
  28. PIROXICAM [Concomitant]
     Active Substance: PIROXICAM
     Dates: start: 20060629
  29. ALBUTEROL [Concomitant]
     Active Substance: ALBUTEROL
     Dates: start: 20060710
  30. ACTOS [Concomitant]
     Active Substance: PIOGLITAZONE HYDROCHLORIDE
     Dates: start: 20191017
  31. CEPHALEXIN [Concomitant]
     Active Substance: CEPHALEXIN
     Dates: start: 20061030
  32. KETOROLAC [Concomitant]
     Active Substance: KETOROLAC TROMETHAMINE
     Dates: start: 20191017
  33. CARVEDILOL [Concomitant]
     Active Substance: CARVEDILOL
     Dates: start: 20191017
  34. TOPIRAMATE [Concomitant]
     Active Substance: TOPIRAMATE
  35. BUPROPION [Concomitant]
     Active Substance: BUPROPION
  36. RANITIDINE [Concomitant]
     Active Substance: RANITIDINE
  37. VERAPAMIL [Concomitant]
     Active Substance: VERAPAMIL HYDROCHLORIDE
  38. BROMOCRIPTINE [Concomitant]
     Active Substance: BROMOCRIPTINE
  39. TRADJENTA [Concomitant]
     Active Substance: LINAGLIPTIN
  40. MONTELUKAST [Concomitant]
     Active Substance: MONTELUKAST SODIUM
  41. JANUMET [Concomitant]
     Active Substance: METFORMIN HYDROCHLORIDE\SITAGLIPTIN PHOSPHATE
  42. LASIX [Concomitant]
     Active Substance: FUROSEMIDE
  43. PERCOCET [Concomitant]
     Active Substance: ACETAMINOPHEN\OXYCODONE HYDROCHLORIDE
  44. BYDUREON [Concomitant]
     Active Substance: EXENATIDE
  45. ACETAMINOPHEN\HYDROCODONE [Concomitant]
     Active Substance: ACETAMINOPHEN\HYDROCODONE
  46. TRAMADOL HCL [Concomitant]
     Active Substance: TRAMADOL HYDROCHLORIDE
  47. ZOLPIDEM [Concomitant]
     Active Substance: ZOLPIDEM TARTRATE
  48. CYCLOBENZAPRINE [Concomitant]
     Active Substance: CYCLOBENZAPRINE
  49. ACETAMINOPHEN [Concomitant]
     Active Substance: ACETAMINOPHEN
  50. SULFAMETHOXAZOLE/ TMP [Concomitant]
  51. PROMETHAZINE [Concomitant]
     Active Substance: PROMETHAZINE HYDROCHLORIDE
  52. FERRALET [Concomitant]
  53. AMITRIPTYLINE [Concomitant]
     Active Substance: AMITRIPTYLINE
  54. FLUTICASONE [Concomitant]
     Active Substance: FLUTICASONE
  55. AZITHROMYCIN [Concomitant]
     Active Substance: AZITHROMYCIN
  56. MAGNESIUM OXIDE [Concomitant]
     Active Substance: MAGNESIUM OXIDE
  57. BISACODYL [Concomitant]
     Active Substance: BISACODYL
  58. TORSEMIDE [Concomitant]
     Active Substance: TORSEMIDE
  59. LEVOCETIRIZINE [Concomitant]
     Active Substance: LEVOCETIRIZINE
  60. LOSARTAN POTASSIUM [Concomitant]
     Active Substance: LOSARTAN POTASSIUM
  61. BASAGLAR [Concomitant]
     Active Substance: INSULIN GLARGINE
  62. SILVER SULFADIAZINE [Concomitant]
     Active Substance: SILVER SULFADIAZINE
  63. BUPROPION HYDROCHLORIDE [Concomitant]
     Active Substance: BUPROPION HYDROCHLORIDE
  64. APRI [Concomitant]
     Active Substance: DESOGESTREL\ETHINYL ESTRADIOL
  65. VOLTAREN [Concomitant]
     Active Substance: DICLOFENAC SODIUM
  66. METHYLPREDNISOLONE [Concomitant]
     Active Substance: METHYLPREDNISOLONE
  67. PNEUMOVAX 23 [Concomitant]
     Active Substance: PNEUMOCOCCAL VACCINE, POLYVALENT 23
  68. TIZANIDINE HYDROCHLORIDE [Concomitant]
     Active Substance: TIZANIDINE HYDROCHLORIDE
  69. METFORMIN HYDROCHLORIDE [Concomitant]
     Active Substance: METFORMIN HYDROCHLORIDE
  70. AMLODIPINE BESYLATE [Concomitant]
     Active Substance: AMLODIPINE BESYLATE
  71. MUPIROCIN [Concomitant]
     Active Substance: MUPIROCIN
  72. CLINDAMYCIN HYDROCHLORIDE [Concomitant]
     Active Substance: CLINDAMYCIN HYDROCHLORIDE
  73. PREVIDENT [Concomitant]
     Active Substance: SODIUM FLUORIDE
  74. PREVIFEM [Concomitant]
     Active Substance: ETHINYL ESTRADIOL\NORGESTIMATE
  75. FERRAPLUS [Concomitant]
  76. HYDROXYCHLOROQUINE [Concomitant]
     Active Substance: HYDROXYCHLOROQUINE
  77. EMOQUETTE [Concomitant]
     Active Substance: DESOGESTREL\ETHINYL ESTRADIOL
  78. AMOX-TR-K-CLAV [Concomitant]
  79. MICROGESTIN [Concomitant]
     Active Substance: ETHINYL ESTRADIOL\NORETHINDRONE ACETATE
  80. FLUOXETINE [Concomitant]
     Active Substance: FLUOXETINE HYDROCHLORIDE
  81. CHOLESTYRAMINE [Concomitant]
     Active Substance: CHOLESTYRAMINE
  82. DICLOFENAC SODIUM [Concomitant]
     Active Substance: DICLOFENAC SODIUM
  83. DOXYCYCLINE HYCLATE [Concomitant]
     Active Substance: DOXYCYCLINE HYCLATE
  84. NORTRIPTYLINE HYDROCHLORIDE [Concomitant]
     Active Substance: NORTRIPTYLINE HYDROCHLORIDE
  85. NABUMETONE [Concomitant]
     Active Substance: NABUMETONE
  86. ETODOLAC [Concomitant]
     Active Substance: ETODOLAC
  87. NITROFURANTOIN [Concomitant]
     Active Substance: NITROFURANTOIN
  88. MIRTAZAPINE [Concomitant]
     Active Substance: MIRTAZAPINE
  89. LEVEMIR [Concomitant]
     Active Substance: INSULIN DETEMIR
  90. PRENAPLUS [Concomitant]
  91. MAXIFED [Concomitant]
     Active Substance: GUAIFENESIN\PSEUDOEPHEDRINE HYDROCHLORIDE
  92. PREDNISOLONE [Concomitant]
     Active Substance: PREDNISOLONE
  93. CINACALCET [Concomitant]
     Active Substance: CINACALCET
  94. PREGABALIN [Concomitant]
     Active Substance: PREGABALIN
  95. OZEMPIC [Concomitant]
     Active Substance: SEMAGLUTIDE
  96. TRESIBA [Concomitant]
     Active Substance: INSULIN DEGLUDEC
  97. CEFDINIR [Concomitant]
     Active Substance: CEFDINIR
  98. MECLIZINE [Concomitant]
     Active Substance: MECLIZINE HYDROCHLORIDE
  99. MEDROXYPROGESTERONE [Concomitant]
     Active Substance: MEDROXYPROGESTERONE
  100. EPOGEN [Concomitant]
     Active Substance: ERYTHROPOIETIN
  101. MYSOLINE [Concomitant]
     Active Substance: PRIMIDONE
  102. ROCALTROL [Concomitant]
     Active Substance: CALCITRIOL
  103. FERROUS SULFATE [Concomitant]
     Active Substance: FERROUS SULFATE
  104. CABERGOLINE [Concomitant]
     Active Substance: CABERGOLINE
  105. APIDRA [Concomitant]
     Active Substance: INSULIN GLULISINE

REACTIONS (7)
  - Chronic kidney disease [Not Recovered/Not Resolved]
  - Acute kidney injury [Unknown]
  - End stage renal disease [Not Recovered/Not Resolved]
  - Renal failure [Unknown]
  - Nephrogenic anaemia [Unknown]
  - Renal tubular necrosis [Unknown]
  - Hyperparathyroidism secondary [Unknown]

NARRATIVE: CASE EVENT DATE: 20170314
